FAERS Safety Report 14281929 (Version 7)
Quarter: 2018Q2

REPORT INFORMATION
  Report Type: Report from Study
  Country: None (occurrence: GB)
  Receive Date: 20171213
  Receipt Date: 20180601
  Transmission Date: 20180711
  Serious: Yes (Hospitalization)
  Sender: FDA-Public Use
  Company Number: GB-BAUSCH-BL-2017-033155

PATIENT
  Age: 82 Year
  Sex: Female

DRUGS (54)
  1. DEXAMETHASONE. [Suspect]
     Active Substance: DEXAMETHASONE
     Dosage: 8 MG ON DAYS 1, 2, 4, 5, 8, 9, 11 AND 12 OF EACH 21-DAY CYCLE
     Route: 048
     Dates: start: 20170512, end: 20170613
  2. VELCADE [Suspect]
     Active Substance: BORTEZOMIB
     Dosage: LYOPHILIZED?DAYS 1, 4, 8 AND 11 OF EACH 21-DAY CYCLE FOR CYCLES 1-8
     Route: 058
     Dates: start: 20170331, end: 20170607
  3. AMLODIPINE BESILATE [Concomitant]
     Active Substance: AMLODIPINE BESYLATE
     Indication: HYPERTENSION
     Route: 048
     Dates: start: 20161102
  4. PANADEINE (ACETAMINOPHEN (+) CODEINE PHOSPHATE) [Concomitant]
     Indication: HEADACHE
     Route: 048
     Dates: start: 20170729
  5. ASPIRIN. [Concomitant]
     Active Substance: ASPIRIN
     Indication: THROMBOSIS PROPHYLAXIS
     Route: 048
     Dates: start: 20170529
  6. DOMPERIDONE [Concomitant]
     Active Substance: DOMPERIDONE
     Indication: NAUSEA
     Route: 048
     Dates: start: 20170109, end: 20170223
  7. EPOETIN [Concomitant]
     Active Substance: ERYTHROPOIETIN
     Indication: ANAEMIA
     Dosage: 30000 UNIT, 1 WEEK
     Route: 058
     Dates: start: 20160901, end: 20161117
  8. VELCADE [Suspect]
     Active Substance: BORTEZOMIB
     Dosage: LYOPHILIZED?DAYS 1, 4, 8 AND 11 OF EACH 21-DAY CYCLE FOR CYCLES 1-8.
     Route: 058
     Dates: start: 20170106, end: 20170124
  9. LOPERAMIDE HYDROCHLORIDE. [Concomitant]
     Active Substance: LOPERAMIDE HYDROCHLORIDE
     Indication: DIARRHOEA
     Dosage: PRN (AS NEEDED)
     Route: 048
     Dates: start: 20170512
  10. OSELTAMIVIR PHOSPHATE. [Concomitant]
     Active Substance: OSELTAMIVIR PHOSPHATE
     Indication: INFLUENZA
     Route: 048
     Dates: start: 20170330
  11. OXYBUTYNIN HYDROCHLORIDE [Concomitant]
     Active Substance: OXYBUTYNIN CHLORIDE
     Indication: INCONTINENCE
     Route: 048
     Dates: start: 20160602
  12. DOMPERIDONE [Concomitant]
     Active Substance: DOMPERIDONE
     Indication: PROPHYLAXIS OF NAUSEA AND VOMITING
     Route: 048
     Dates: start: 20170224
  13. OXYBUTYNIN CHLORIDE. [Concomitant]
     Active Substance: OXYBUTYNIN CHLORIDE
     Indication: INCONTINENCE
     Route: 048
     Dates: start: 20160602
  14. ACETAMINOPHEN W/CODEINE PHOSPHATE [Concomitant]
     Active Substance: ACETAMINOPHEN\CODEINE PHOSPHATE
     Route: 065
  15. DEXAMETHASONE. [Suspect]
     Active Substance: DEXAMETHASONE
     Dosage: 12 MG ON DAYS 1, 2, 4, 5, 8, 9, 11 AND 12 OF EACH 21-DAY CYCLE
     Route: 048
     Dates: start: 20170407, end: 20170429
  16. DEXAMETHASONE. [Suspect]
     Active Substance: DEXAMETHASONE
     Route: 048
  17. ERYTHROPOIETIN [Concomitant]
     Active Substance: ERYTHROPOIETIN
     Indication: ANAEMIA
     Dosage: 12,000 UNITS WEEKLY DOSE
     Route: 058
     Dates: start: 20161118
  18. ERYTHROPOIETIN [Concomitant]
     Active Substance: ERYTHROPOIETIN
     Dosage: 30000 UNIT, WEEKLY ONCE
     Route: 058
     Dates: start: 20160901, end: 20161117
  19. ASPIRIN. [Concomitant]
     Active Substance: ASPIRIN
     Indication: PROPHYLAXIS
     Route: 048
     Dates: start: 20150529
  20. AMLODIPINE [Concomitant]
     Active Substance: AMLODIPINE BESYLATE
     Indication: HYPERTENSION
     Route: 048
     Dates: start: 20161102
  21. DOXAZOCIN [Concomitant]
     Active Substance: DOXAZOSIN MESYLATE
     Indication: HYPERTENSION
     Route: 048
     Dates: start: 20080211
  22. DEXAMETHASONE. [Suspect]
     Active Substance: DEXAMETHASONE
     Route: 048
  23. VELCADE [Suspect]
     Active Substance: BORTEZOMIB
     Dosage: LYOPHILIZED?DAYS 1, 4, 8 AND 11 OF EACH 21-DAY CYCLE FOR CYCLES 1-8
     Route: 058
     Dates: start: 20170211, end: 20170309
  24. ACETYLSALICYLIC ACID [Concomitant]
     Active Substance: ASPIRIN
     Indication: THROMBOSIS PROPHYLAXIS
     Route: 048
     Dates: start: 20170529
  25. DEXAMETHASONE. [Suspect]
     Active Substance: DEXAMETHASONE
     Dosage: 20 MG ON DAYS 1, 2, 4, 5, 8, 9, 11 AND 12 OF EACH 21-DAY CYCLE
     Route: 048
     Dates: start: 20170106, end: 20170117
  26. DEXAMETHASONE. [Suspect]
     Active Substance: DEXAMETHASONE
     Route: 048
  27. VENETOCLAX. [Suspect]
     Active Substance: VENETOCLAX
     Dosage: DAILY
     Route: 048
     Dates: start: 20171110
  28. LANSOPRAZOLE. [Concomitant]
     Active Substance: LANSOPRAZOLE
     Indication: HIATUS HERNIA
     Route: 048
     Dates: start: 201308
  29. DOMPERIDONE MALEATE [Concomitant]
     Active Substance: DOMPERIDONE MALEATE
     Indication: PROPHYLAXIS OF NAUSEA AND VOMITING
     Route: 048
     Dates: start: 20170109, end: 20170223
  30. LEKOVIT CA [Concomitant]
     Active Substance: CALCIUM CARBONATE\CHOLECALCIFEROL
     Indication: PROPHYLAXIS
     Route: 048
     Dates: start: 20101202
  31. FUROSEMIDE SODIUM [Concomitant]
     Active Substance: FUROSEMIDE SODIUM
     Indication: OEDEMA PERIPHERAL
     Route: 048
     Dates: start: 20170208
  32. FUROSEMIDE SODIUM [Concomitant]
     Active Substance: FUROSEMIDE SODIUM
     Route: 048
     Dates: start: 201702, end: 20170207
  33. ACETAMINOPHEN W/CODEINE PHOSPHATE [Concomitant]
     Active Substance: ACETAMINOPHEN\CODEINE PHOSPHATE
     Indication: HEADACHE
     Route: 048
     Dates: start: 20170729
  34. DEXAMETHASONE. [Suspect]
     Active Substance: DEXAMETHASONE
     Indication: PLASMA CELL MYELOMA
     Dosage: 8 MG ON DAYS 1, 2, 8, 9, 15, 16, 22 AND 23 OF EACH 35-DAY CYCLE
     Route: 048
  35. VELCADE [Suspect]
     Active Substance: BORTEZOMIB
     Indication: PLASMA CELL MYELOMA
     Dosage: LYOPHILIZED POWDER?DAYS 1, 8, 15 AND 22 OF EACH 35-DAY CYCLE FOR CYCLES 9 AND BEYOND
     Route: 058
  36. VENETOCLAX. [Suspect]
     Active Substance: VENETOCLAX
     Indication: PLASMA CELL MYELOMA
     Dosage: 1 UNKNOWN UNIT
     Route: 048
     Dates: start: 20170106, end: 20170124
  37. VENETOCLAX. [Suspect]
     Active Substance: VENETOCLAX
     Dosage: 1 UNKNOWN UNIT
     Route: 048
     Dates: start: 20170211, end: 20170309
  38. LANSOPRAZOLE. [Concomitant]
     Active Substance: LANSOPRAZOLE
     Route: 048
     Dates: start: 20130815
  39. GABAPENTIN. [Concomitant]
     Active Substance: GABAPENTIN
     Indication: BURSITIS
     Route: 048
     Dates: start: 20161117
  40. LOPERAMIDE [Concomitant]
     Active Substance: LOPERAMIDE
     Indication: DIARRHOEA
     Dosage: AS NECESSARY
     Route: 048
     Dates: start: 20170512
  41. COCODAMOL [Concomitant]
     Active Substance: ACETAMINOPHEN\CODEINE PHOSPHATE
     Indication: HEADACHE
     Dosage: AS REQUIRED
     Route: 048
     Dates: start: 20170729
  42. EPOETIN [Concomitant]
     Active Substance: ERYTHROPOIETIN
     Dosage: 12000 UNIT, PER 1 WEEK
     Route: 058
     Dates: start: 20161118
  43. DEXAMETHASONE. [Suspect]
     Active Substance: DEXAMETHASONE
     Dosage: 12 MG ON DAYS 1, 2, 4, 5, 8, 9, 11 AND 12 OF EACH 21-DAY CYCLE
     Route: 048
     Dates: start: 20170217, end: 20170228
  44. VELCADE [Suspect]
     Active Substance: BORTEZOMIB
     Dosage: LYOPHILIZED POWDER?DAYS 1, 4, 8, AND 11 OF EACH 21 DAY CYCLE FOR CYCLE 9 AND BEYOND
     Route: 058
  45. VENETOCLAX. [Suspect]
     Active Substance: VENETOCLAX
     Route: 048
     Dates: start: 20170331, end: 20170607
  46. DOMPERIDONE MALEATE [Concomitant]
     Active Substance: DOMPERIDONE MALEATE
     Indication: NAUSEA
     Route: 048
     Dates: start: 20170224
  47. PARACETAMOL [Concomitant]
     Active Substance: ACETAMINOPHEN
     Indication: HEADACHE
     Route: 048
     Dates: start: 20170729
  48. FUROSEMIDE. [Concomitant]
     Active Substance: FUROSEMIDE
     Indication: OEDEMA PERIPHERAL
     Route: 048
     Dates: start: 20170208
  49. OSELTAMIVIR [Concomitant]
     Active Substance: OSELTAMIVIR
     Indication: INFLUENZA
     Route: 048
     Dates: start: 20170330
  50. ACETAMINOPHEN. [Concomitant]
     Active Substance: ACETAMINOPHEN
     Indication: HEADACHE
     Route: 048
     Dates: start: 20170729
  51. VENETOCLAX. [Suspect]
     Active Substance: VENETOCLAX
     Route: 048
     Dates: start: 20170630, end: 20171026
  52. POTASSIUM [Concomitant]
     Active Substance: POTASSIUM
     Indication: BLOOD POTASSIUM DECREASED
     Route: 048
  53. FUROSEMIDE. [Concomitant]
     Active Substance: FUROSEMIDE
     Route: 048
     Dates: start: 201702, end: 20170207
  54. PAMIDRONATE [Concomitant]
     Active Substance: PAMIDRONATE DISODIUM
     Indication: BONE DISORDER
     Route: 042

REACTIONS (1)
  - Lung infection [Recovered/Resolved]

NARRATIVE: CASE EVENT DATE: 20171026
